FAERS Safety Report 17621507 (Version 2)
Quarter: 2020Q2

REPORT INFORMATION
  Report Type: Spontaneous
  Country: US (occurrence: US)
  Receive Date: 20200403
  Receipt Date: 20200409
  Transmission Date: 20200713
  Serious: Yes (Other)
  Sender: FDA-Public Use
  Company Number: US-PFIZER INC-2020139214

PATIENT
  Age: 30 Year
  Sex: Male
  Weight: 134 kg

DRUGS (10)
  1. CAFFEINE. [Concomitant]
     Active Substance: CAFFEINE
     Dosage: 600 MG, UNK
  2. METHYLTESTOSTERONE. [Suspect]
     Active Substance: METHYLTESTOSTERONE
     Indication: MUSCLE BUILDING THERAPY
     Dosage: UNK (MORE THAN A DECADE)
     Route: 048
  3. SOMATROPIN. [Concomitant]
     Active Substance: SOMATROPIN
     Indication: MUSCLE BUILDING THERAPY
     Dosage: UNK  (MORE THAN A DECADE)
  4. TESTOSTERONE CIPIONATE [Suspect]
     Active Substance: TESTOSTERONE
     Indication: MUSCLE BUILDING THERAPY
     Dosage: UNK (INJECTABLE)/(MORE THAN A DECADE)
  5. TESTOSTERONE CIPIONATE [Suspect]
     Active Substance: TESTOSTERONE
     Dosage: 500 MG, 2X/WEEK
     Route: 030
  6. CREATINE MONOHYDRATE [Concomitant]
     Active Substance: CREATINE MONOHYDRATE
     Indication: NUTRITIONAL SUPPLEMENTATION
     Dosage: 10 G, DAILY  (MORE THAN A DECADE)
  7. GLUTAMINE [Concomitant]
     Active Substance: GLUTAMINE
     Indication: NUTRITIONAL SUPPLEMENTATION
     Dosage: 10 G, DAILY  (MORE THAN A DECADE)
  8. INSULIN [Concomitant]
     Active Substance: INSULIN NOS
     Indication: MUSCLE BUILDING THERAPY
     Dosage: UNK  (MORE THAN A DECADE)
  9. SOMATROPIN. [Concomitant]
     Active Substance: SOMATROPIN
     Dosage: 4 IU, UNK (5 D/WK)
  10. EPHEDRINE. [Concomitant]
     Active Substance: EPHEDRINE
     Dosage: 75 MG, UNK

REACTIONS (5)
  - Acute kidney injury [Recovering/Resolving]
  - Drug abuse [Unknown]
  - Product use in unapproved indication [Unknown]
  - Off label use [Unknown]
  - Focal segmental glomerulosclerosis [Unknown]
